FAERS Safety Report 20158488 (Version 3)
Quarter: 2021Q4

REPORT INFORMATION
  Report Type: Spontaneous
  Country: BR (occurrence: BR)
  Receive Date: 20211207
  Receipt Date: 20211220
  Transmission Date: 20220303
  Serious: Yes (Other)
  Sender: FDA-Public Use
  Company Number: BR-CELLTRION INC.-2021BR016495

PATIENT

DRUGS (4)
  1. INFLIXIMAB [Suspect]
     Active Substance: INFLIXIMAB
     Indication: Takayasu^s arteritis
     Dosage: 2 AMPOULES EVERY 8 WEEKS (FIRST INFUSION)
     Route: 042
  2. INFLIXIMAB [Suspect]
     Active Substance: INFLIXIMAB
     Dosage: 2 AMPOULES EVERY 8 WEEKS (SECOND INFUSION)
     Route: 042
  3. INFLIXIMAB [Suspect]
     Active Substance: INFLIXIMAB
     Dosage: 2 AMPOULES EVERY 8 WEEKS (THIRDINFUSION)
     Route: 042
     Dates: start: 20211129
  4. PREDNISONE [Concomitant]
     Active Substance: PREDNISONE
     Indication: Takayasu^s arteritis
     Dosage: 20 MG 1X PER DAY
     Route: 048
     Dates: start: 2016

REACTIONS (6)
  - Takayasu^s arteritis [Not Recovered/Not Resolved]
  - Condition aggravated [Not Recovered/Not Resolved]
  - Drug hypersensitivity [Recovered/Resolved]
  - Drug ineffective for unapproved indication [Not Recovered/Not Resolved]
  - Therapeutic response changed [Unknown]
  - Off label use [Unknown]
